FAERS Safety Report 4734105-2 (Version None)
Quarter: 2005Q3

REPORT INFORMATION
  Report Type: 
  Country: None (occurrence: None)
  Receive Date: 20050804
  Receipt Date: 20050725
  Transmission Date: 20060218
  Serious: Yes (Other)
  Sender: FDA-Public Use
  Company Number: US-JNJFOC-20050404284

PATIENT
  Sex: Female
  Weight: 62.6 kg

DRUGS (5)
  1. REMICADE [Suspect]
     Indication: CROHN'S DISEASE
     Route: 042
  2. SYNTHROID [Concomitant]
     Indication: HYPOTHYROIDISM
  3. ACIPHEX [Concomitant]
  4. PRILOSEC [Concomitant]
  5. ASPIRIN [Concomitant]
     Indication: PAIN

REACTIONS (2)
  - ALOPECIA EFFLUVIUM [None]
  - DERMATITIS [None]
